FAERS Safety Report 6004249-6 (Version None)
Quarter: 2008Q4

REPORT INFORMATION
  Report Type: 
  Country: None (occurrence: None)
  Receive Date: 20081216
  Receipt Date: 20081205
  Transmission Date: 20090506
  Serious: Yes (Death, Other)
  Sender: FDA-Public Use
  Company Number: US-PFIZER INC-2008092297

PATIENT
  Sex: Male

DRUGS (2)
  1. SUTENT [Suspect]
     Indication: METASTATIC RENAL CELL CARCINOMA
     Dosage: 37.5 MG, 1X/DAY
     Route: 048
     Dates: start: 20080819, end: 20080101
  2. SUTENT [Suspect]
     Dates: start: 20080819, end: 20080101

REACTIONS (5)
  - CONVULSION [None]
  - DEATH [None]
  - LUNG NEOPLASM [None]
  - PERICARDIAL EFFUSION [None]
  - PULMONARY EMBOLISM [None]
